FAERS Safety Report 7501791-3 (Version None)
Quarter: 2011Q2

REPORT INFORMATION
  Report Type: 
  Country: None (occurrence: None)
  Receive Date: 20110523
  Receipt Date: 20110523
  Transmission Date: 20111010
  Serious: Yes (Other)
  Sender: FDA-Public Use
  Company Number: None

PATIENT
  Age: 29 Year
  Sex: Female
  Weight: 58.9676 kg

DRUGS (1)
  1. PROPRANOLOL [Suspect]
     Indication: MIGRAINE
     Dosage: 60MG ONCE DAILY PO
     Route: 048
     Dates: start: 20110416, end: 20110518

REACTIONS (5)
  - ABNORMAL DREAMS [None]
  - CHEST PAIN [None]
  - ANXIETY [None]
  - BLOOD PRESSURE INCREASED [None]
  - DYSPNOEA [None]
